FAERS Safety Report 24832389 (Version 1)
Quarter: 2025Q1

REPORT INFORMATION
  Report Type: Spontaneous
  Country: US (occurrence: US)
  Receive Date: 20250110
  Receipt Date: 20250110
  Transmission Date: 20250408
  Serious: No
  Sender: ALKERMES
  Company Number: US-ALKERMES INC.-ALK-2024-003331

PATIENT
  Sex: Male

DRUGS (1)
  1. VIVITROL [Suspect]
     Active Substance: NALTREXONE
     Indication: Product used for unknown indication
     Route: 030

REACTIONS (3)
  - Tremor [Unknown]
  - Motor dysfunction [Unknown]
  - Alcohol withdrawal syndrome [Unknown]

NARRATIVE: CASE EVENT DATE: 20240101
